FAERS Safety Report 8152594 (Version 3)
Quarter: 2014Q3

REPORT INFORMATION
  Report Type: Spontaneous
  Country: US (occurrence: US)
  Receive Date: 20110922
  Receipt Date: 20140918
  Transmission Date: 20150326
  Serious: Yes (Hospitalization)
  Sender: FDA-Public Use
  Company Number: US-ASTRAZENECA-2009SE24340

PATIENT
  Age: 20405 Day
  Sex: Female
  Weight: 81.6 kg

DRUGS (8)
  1. SEROQUEL XR [Suspect]
     Active Substance: QUETIAPINE FUMARATE
     Indication: BIPOLAR DISORDER
     Route: 048
  2. DEPAKOTE [Concomitant]
     Active Substance: DIVALPROEX SODIUM
     Indication: BIPOLAR DISORDER
  3. TYLENOL [Concomitant]
     Active Substance: ACETAMINOPHEN
     Indication: SPINAL LAMINECTOMY
     Dosage: PRN
     Route: 065
     Dates: start: 1998
  4. SEROQUEL XR [Suspect]
     Active Substance: QUETIAPINE FUMARATE
     Indication: BIPOLAR DISORDER
     Route: 048
  5. MECLIZINE OVER THE COUNTER [Concomitant]
     Indication: NAUSEA
     Dosage: 12.5 PRN
     Route: 065
     Dates: start: 201408
  6. SEROQUEL XR [Suspect]
     Active Substance: QUETIAPINE FUMARATE
     Indication: BIPOLAR DISORDER
     Route: 048
     Dates: start: 2009
  7. BABY ASPIRIN [Concomitant]
     Active Substance: ASPIRIN
     Indication: CARDIOVASCULAR EVENT PROPHYLAXIS
     Route: 065
  8. PROZAC [Concomitant]
     Active Substance: FLUOXETINE HYDROCHLORIDE
     Indication: BIPOLAR DISORDER

REACTIONS (14)
  - Road traffic accident [Recovered/Resolved]
  - Drug dose omission [Not Recovered/Not Resolved]
  - Craniocerebral injury [Recovered/Resolved]
  - Gastroenteritis [Unknown]
  - Confusional state [Recovered/Resolved]
  - Feeling abnormal [Recovered/Resolved]
  - Blood cholesterol increased [Unknown]
  - Nosocomial infection [Unknown]
  - Disorientation [Recovered/Resolved]
  - Vomiting [Unknown]
  - Amnesia [Unknown]
  - Dysarthria [Recovered/Resolved]
  - Indifference [Recovered/Resolved]
  - Nausea [Unknown]

NARRATIVE: CASE EVENT DATE: 20100527
